FAERS Safety Report 6294427-3 (Version None)
Quarter: 2009Q3

REPORT INFORMATION
  Report Type: 
  Country: None (occurrence: None)
  Receive Date: 20090803
  Receipt Date: 20090727
  Transmission Date: 20100115
  Serious: Yes (Other)
  Sender: FDA-Public Use
  Company Number: JP-ROCHE-645988

PATIENT
  Age: 55 Year
  Sex: Female

DRUGS (4)
  1. CLONAZEPAM [Suspect]
     Indication: CONVULSION
     Route: 065
  2. CLONAZEPAM [Suspect]
     Route: 065
  3. SUMATRIPTAN SUCCINATE [Suspect]
     Indication: DRUG USE FOR UNKNOWN INDICATION
     Route: 065
  4. SUMATRIPTAN SUCCINATE [Suspect]
     Route: 065

REACTIONS (6)
  - APATHY [None]
  - DRUG ABUSE [None]
  - HEADACHE [None]
  - MAJOR DEPRESSION [None]
  - PANIC DISORDER [None]
  - SOCIAL PHOBIA [None]
